FAERS Safety Report 14629760 (Version 2)
Quarter: 2018Q3

REPORT INFORMATION
  Report Type: Spontaneous
  Country: US (occurrence: US)
  Receive Date: 20180313
  Receipt Date: 20180702
  Transmission Date: 20181010
  Serious: Yes (Other)
  Sender: FDA-Public Use
  Company Number: US-SUN PHARMACEUTICAL INDUSTRIES LTD-2018US-165712

PATIENT
  Age: 63 Year
  Sex: Female

DRUGS (1)
  1. ACETAMINOPHEN. [Suspect]
     Active Substance: ACETAMINOPHEN
     Indication: PAIN
     Dosage: UNK
     Route: 065

REACTIONS (10)
  - Analgesic drug level increased [Unknown]
  - Acute kidney injury [Unknown]
  - Hepatotoxicity [Unknown]
  - White blood cell count increased [Unknown]
  - Electrolyte imbalance [Unknown]
  - Metabolic acidosis [Unknown]
  - Neurone-specific enolase increased [Unknown]
  - Hypotension [Unknown]
  - Pyroglutamate increased [Unknown]
  - Unresponsive to stimuli [Unknown]
